FAERS Safety Report 11866294 (Version 1)
Quarter: 2015Q4

REPORT INFORMATION
  Report Type: Spontaneous
  Country: US (occurrence: US)
  Receive Date: 20151223
  Receipt Date: 20151223
  Transmission Date: 20160305
  Serious: Yes (Other)
  Sender: FDA-Public Use
  Company Number: US-FRI-1000081770

PATIENT
  Sex: Female

DRUGS (4)
  1. CYMBALTA [Suspect]
     Active Substance: DULOXETINE HYDROCHLORIDE
  2. GABAPENTIN. [Suspect]
     Active Substance: GABAPENTIN
  3. LYRICA [Suspect]
     Active Substance: PREGABALIN
  4. SAVELLA [Suspect]
     Active Substance: MILNACIPRAN HYDROCHLORIDE

REACTIONS (2)
  - Heart transplant [Unknown]
  - Pain [Unknown]

NARRATIVE: CASE EVENT DATE: 20141210
